FAERS Safety Report 5827755-3 (Version None)
Quarter: 2008Q3

REPORT INFORMATION
  Report Type: 
  Country: None (occurrence: None)
  Receive Date: 20080728
  Receipt Date: 20080714
  Transmission Date: 20090109
  Serious: Yes (Other)
  Sender: FDA-Public Use
  Company Number: 100#08#208-03682

PATIENT
  Age: 58 Year
  Sex: Female

DRUGS (1)
  1. ALENDRONATE SODIUM [Suspect]
     Indication: OSTEOPOROSIS
     Dosage: 10 MG ORAL
     Route: 048

REACTIONS (4)
  - HEADACHE [None]
  - JOINT SWELLING [None]
  - POLYARTHRITIS [None]
  - SYNOVITIS [None]
